FAERS Safety Report 6259119-5 (Version None)
Quarter: 2009Q3

REPORT INFORMATION
  Report Type: 
  Country: None (occurrence: None)
  Receive Date: 20090702
  Receipt Date: 20090617
  Transmission Date: 20100115
  Serious: Yes (Death, Hospitalization)
  Sender: FDA-Public Use
  Company Number: 2009AL001762

PATIENT
  Age: 79 Year
  Sex: Male

DRUGS (6)
  1. DIGOXIN [Suspect]
     Indication: ATRIAL FIBRILLATION
     Dosage: 0.125MG, DAILY, PO
     Route: 048
  2. TOPROL-XL [Concomitant]
  3. NORVASC [Concomitant]
  4. DILANTIN [Concomitant]
  5. ATIVAN [Concomitant]
  6. THEOPHYLLINE [Concomitant]

REACTIONS (16)
  - ANHEDONIA [None]
  - ANXIETY [None]
  - ATRIAL FIBRILLATION [None]
  - BALANCE DISORDER [None]
  - BLOOD GLUCOSE INCREASED [None]
  - BRADYCARDIA [None]
  - CARDIAC FAILURE CONGESTIVE [None]
  - CONFUSIONAL STATE [None]
  - CONVULSION [None]
  - ECONOMIC PROBLEM [None]
  - FALL [None]
  - INJURY [None]
  - PAIN [None]
  - TACHYCARDIA [None]
  - UNEVALUABLE EVENT [None]
  - UNRESPONSIVE TO STIMULI [None]
